FAERS Safety Report 24229303 (Version 1)
Quarter: 2024Q3

REPORT INFORMATION
  Report Type: Spontaneous
  Country: US (occurrence: None)
  Receive Date: 20240820
  Receipt Date: 20240820
  Transmission Date: 20241016
  Serious: Yes (Other)
  Sender: USAntibiotics
  Company Number: US-USAntibiotics-000331

PATIENT
  Age: 60 Year
  Sex: Female

DRUGS (3)
  1. AUGMENTIN [Suspect]
     Active Substance: AMOXICILLIN\CLAVULANATE POTASSIUM
     Indication: Colitis
     Dates: start: 202405
  2. DUPIXENT [Suspect]
     Active Substance: DUPILUMAB
     Indication: Nasal polyps
     Dosage: 300 MILLIGRAMS
     Dates: start: 202101
  3. HIZENTRA [Suspect]
     Active Substance: HUMAN IMMUNOGLOBULIN G
     Indication: Product used for unknown indication

REACTIONS (12)
  - Drug ineffective [Unknown]
  - Clostridium difficile colitis [Unknown]
  - Abdominal pain upper [Unknown]
  - Dry mouth [Unknown]
  - Oral pain [Unknown]
  - Gastrointestinal pain [Unknown]
  - Product use in unapproved indication [Unknown]
  - Nausea [Unknown]
  - Diarrhoea [Unknown]
  - Headache [Unknown]
  - Abdominal pain [Unknown]
  - Medication error [Unknown]
